FAERS Safety Report 7493314-2 (Version None)
Quarter: 2011Q2

REPORT INFORMATION
  Report Type: 
  Country: None (occurrence: None)
  Receive Date: 20110512
  Receipt Date: 20110506
  Transmission Date: 20111010
  Serious: Yes (Other)
  Sender: FDA-Public Use
  Company Number: 2011SP020711

PATIENT
  Sex: Female

DRUGS (1)
  1. BIVIOL (DESOGESTREL/ETHINYLESTRADIOL /00570801/) [Suspect]
     Indication: CONTRACEPTION

REACTIONS (1)
  - PLATELET COUNT DECREASED [None]
